FAERS Safety Report 5544561-8 (Version None)
Quarter: 2007Q4

REPORT INFORMATION
  Report Type: 
  Country: None (occurrence: None)
  Receive Date: 20071210
  Receipt Date: 20061207
  Transmission Date: 20080405
  Serious: No
  Sender: FDA-Public Use
  Company Number: US-AMGEN-KDL202816

PATIENT
  Sex: Female

DRUGS (3)
  1. ENBREL [Suspect]
     Indication: RHEUMATOID ARTHRITIS
     Route: 058
     Dates: start: 20060906
  2. ENBREL [Suspect]
     Indication: PSORIATIC ARTHROPATHY
  3. AZULFIDINE EN-TABS [Concomitant]
     Route: 048
     Dates: start: 20060801

REACTIONS (3)
  - PARANASAL SINUS HYPERSECRETION [None]
  - PHARYNGOLARYNGEAL PAIN [None]
  - TONGUE ERUPTION [None]
